FAERS Safety Report 15499804 (Version 1)
Quarter: 2018Q4

REPORT INFORMATION
  Report Type: Spontaneous
  Country: US (occurrence: US)
  Receive Date: 20181008
  Receipt Date: 20181008
  Transmission Date: 20190205
  Serious: Yes (Other)
  Sender: FDA-Public Use
  Company Number: None

PATIENT
  Age: 55 Year
  Sex: Female

DRUGS (4)
  1. N/A [Concomitant]
     Active Substance: UNSPECIFIED INGREDIENT
  2. MAVYRET [Suspect]
     Active Substance: GLECAPREVIR\PIBRENTASVIR
     Indication: HEPATITIS
     Route: 048
     Dates: start: 20181005, end: 20181007
  3. N/A [Concomitant]
     Active Substance: UNSPECIFIED INGREDIENT
  4. N/A [Concomitant]
     Active Substance: UNSPECIFIED INGREDIENT

REACTIONS (1)
  - Pruritus [None]

NARRATIVE: CASE EVENT DATE: 20181005
